FAERS Safety Report 5268972-3 (Version None)
Quarter: 2007Q1

REPORT INFORMATION
  Report Type: 
  Country: None (occurrence: None)
  Receive Date: 20070313
  Receipt Date: 20070301
  Transmission Date: 20070707
  Serious: Yes (Hospitalization)
  Sender: FDA-Public Use
  Company Number: GXKR2007CH02233

PATIENT
  Age: 77 Year
  Sex: Female

DRUGS (18)
  1. LISTRIL (NGX) (LISINOPRIL) TABLETS, 20MG [Suspect]
     Indication: SECONDARY HYPERTENSION
     Dosage: 20 MG, QD, ORAL
     Route: 048
     Dates: end: 20070213
  2. FLOXACILLIN SODIUM [Suspect]
     Indication: STAPHYLOCOCCAL INFECTION
     Dosage: 1 G, QID, INTRAVENOUS
     Route: 042
     Dates: start: 20070130, end: 20070213
  3. ASPIRIN CARDIO (ACETYLSALICYLIC ACID) FILM-COATED TABLET, 100MG [Suspect]
     Indication: AORTIC VALVE STENOSIS
     Dosage: 100 MG, QD, ORAL
     Route: 048
     Dates: start: 20070131, end: 20070213
  4. CLEXANE (ENOXAPARIN SODIUM, HEPARIN-FRACTION, SODIUM SALT) VIAL, 100MG [Suspect]
     Dosage: 80 MG, QD, SUBCUTANEOUS
     Route: 058
     Dates: start: 20070130
  5. SIMVASTATIN [Suspect]
     Indication: LIPID METABOLISM DISORDER
     Dosage: 20 MG, QD, ORAL
     Route: 048
     Dates: start: 20070209
  6. NEXIUM [Suspect]
     Dosage: 20 MG, QD, ORAL
     Route: 048
     Dates: start: 20070131, end: 20070213
  7. LANTUS (INSULIN GLARGINE) VIAL, 100 IU [Concomitant]
  8. BELOC (METOPROLOL TARTRATE) TABLET [Concomitant]
  9. DAFALGAN (PARACETAMOL) EFFERVESCENT TABLET, 500 MG [Concomitant]
  10. DISTRANEURIN (CLOMETHIAZOLE EDISILATE) CAPSULE [Concomitant]
  11. SINTROM [Concomitant]
  12. TRAMAL (TRAMADOL HYDROCHLORIDE) LIQUID AS DROPS, 100 MG [Concomitant]
  13. ZANIDIP (LERCANIDIPINE HYDROCHLORIDE) UNK [Concomitant]
  14. ATROVENT (IPRATROPIUM BROMIDE) LIQUID AS SPRAY [Concomitant]
  15. FLUTICASONE PROPIONATE W/SALMETEROL XINAFOATE (FLUTICASONE PROPIONATE, [Concomitant]
  16. SALBUTAMOL SULFATE (SALBUTAMOL SULFATE) LIQUID, 0.05% [Concomitant]
  17. ARICEPT (DONEPEZIL HYDROCHLORIDE) FILM-COATED TABLET, 10 MG [Concomitant]
  18. DIGOXINE (DIGOXIN) TABLET, 0.25 MG [Concomitant]

REACTIONS (6)
  - ANGIOEDEMA [None]
  - AORTIC STENOSIS [None]
  - FALL [None]
  - NO THERAPEUTIC RESPONSE [None]
  - RHABDOMYOLYSIS [None]
  - TYPE II HYPERSENSITIVITY [None]
